FAERS Safety Report 11936655 (Version 1)
Quarter: 2016Q1

REPORT INFORMATION
  Report Type: Spontaneous
  Country: None (occurrence: US)
  Receive Date: 20160121
  Receipt Date: 20160121
  Transmission Date: 20160526
  Serious: No
  Sender: FDA-Public Use
  Company Number: US-AKRON, INC.-1046728

PATIENT
  Age: 82 Year
  Sex: Female

DRUGS (1)
  1. CLOBETASOL PROPIONATE TOPICAL SOLUTION USP 0.05% [Suspect]
     Active Substance: CLOBETASOL PROPIONATE
     Indication: ECZEMA

REACTIONS (1)
  - Hair colour changes [Recovered/Resolved]
